FAERS Safety Report 10455411 (Version 1)
Quarter: 2014Q3

REPORT INFORMATION
  Report Type: Spontaneous
  Country: US (occurrence: None)
  Receive Date: 20140915
  Receipt Date: 20140915
  Transmission Date: 20150326
  Serious: No
  Sender: FDA-Public Use
  Company Number: None

PATIENT
  Age: 56 Year
  Sex: Female
  Weight: 86.18 kg

DRUGS (1)
  1. BRINTELLIX [Suspect]
     Active Substance: VORTIOXETINE HYDROBROMIDE
     Indication: DEPRESSION
     Route: 048
     Dates: start: 20140813, end: 20140902

REACTIONS (9)
  - Myalgia [None]
  - Insomnia [None]
  - Gait disturbance [None]
  - Dizziness [None]
  - Feeling abnormal [None]
  - Night sweats [None]
  - Arthralgia [None]
  - Nightmare [None]
  - Hot flush [None]

NARRATIVE: CASE EVENT DATE: 20140829
